FAERS Safety Report 9799685 (Version 1)
Quarter: 2014Q1

REPORT INFORMATION
  Report Type: Spontaneous
  Country: US (occurrence: US)
  Receive Date: 20140106
  Receipt Date: 20140106
  Transmission Date: 20141002
  Serious: Yes (Other)
  Sender: FDA-Public Use
  Company Number: US-GILEAD-2010-0032760

PATIENT
  Age: 85 Year
  Sex: Male
  Weight: 72.57 kg

DRUGS (9)
  1. LETAIRIS [Suspect]
     Indication: PULMONARY ARTERIAL HYPERTENSION
     Route: 048
     Dates: start: 20100629, end: 20100629
  2. FUROSEMIDE [Concomitant]
  3. ATENOLOL [Concomitant]
  4. AVAPRO [Concomitant]
  5. SIMVASTATIN [Concomitant]
  6. LEXAPRO [Concomitant]
  7. OMEPRAZOLE [Concomitant]
  8. SUCRALFATE [Concomitant]
  9. KLOR-CON [Concomitant]

REACTIONS (1)
  - Drug ineffective [Unknown]
